FAERS Safety Report 9126798 (Version 1)
Quarter: 2013Q1

REPORT INFORMATION
  Report Type: Spontaneous
  Country: US (occurrence: US)
  Receive Date: 20130122
  Receipt Date: 20130122
  Transmission Date: 20140127
  Serious: No
  Sender: FDA-Public Use
  Company Number: US-PFIZER INC-2013024403

PATIENT
  Sex: Female

DRUGS (1)
  1. ALAVERT [Suspect]
     Dosage: UNK, ONCE
     Dates: start: 20130116, end: 20130117

REACTIONS (4)
  - Hypersensitivity [Unknown]
  - Chest discomfort [Unknown]
  - Anxiety [Unknown]
  - Product formulation issue [Unknown]
